FAERS Safety Report 12900614 (Version 2)
Quarter: 2017Q1

REPORT INFORMATION
  Report Type: Report from Study
  Country: US (occurrence: US)
  Receive Date: 20161101
  Receipt Date: 20170109
  Transmission Date: 20170428
  Serious: Yes (Hospitalization, Other)
  Sender: FDA-Public Use
  Company Number: US-ACTELION-A-NJ2016-144651

PATIENT
  Age: 69 Year
  Sex: Male

DRUGS (1)
  1. OPSUMIT [Suspect]
     Active Substance: MACITENTAN
     Indication: PULMONARY ARTERIAL HYPERTENSION
     Dosage: 10 MG, QD
     Route: 048
     Dates: start: 20150928

REACTIONS (14)
  - Pneumonia [Recovering/Resolving]
  - Dyspnoea [Recovering/Resolving]
  - Heart rate irregular [Unknown]
  - Wheezing [Unknown]
  - Renal impairment [Unknown]
  - Dizziness [Unknown]
  - Haemoglobin decreased [Recovering/Resolving]
  - Head injury [Unknown]
  - Oxygen saturation decreased [Recovering/Resolving]
  - Fall [Unknown]
  - Blood pressure increased [Unknown]
  - Pulmonary hypertension [Recovering/Resolving]
  - Pallor [Unknown]
  - Rales [Unknown]

NARRATIVE: CASE EVENT DATE: 20161018
